FAERS Safety Report 7112672-1 (Version None)
Quarter: 2010Q4

REPORT INFORMATION
  Report Type: 
  Country: None (occurrence: None)
  Receive Date: 20101119
  Receipt Date: 20101108
  Transmission Date: 20110411
  Serious: Yes (Other)
  Sender: FDA-Public Use
  Company Number: PHHY2010US71954

PATIENT
  Sex: Female
  Weight: 52.608 kg

DRUGS (1)
  1. CLOZARIL [Suspect]
     Indication: SCHIZOPHRENIA, PARANOID TYPE
     Dosage: 400 MG, QD
     Route: 048

REACTIONS (7)
  - AGRANULOCYTOSIS [None]
  - DYSPHAGIA [None]
  - NEUTROPHIL COUNT DECREASED [None]
  - ODYNOPHAGIA [None]
  - OESOPHAGEAL CARCINOMA [None]
  - PSYCHIATRIC DECOMPENSATION [None]
  - WHITE BLOOD CELL COUNT DECREASED [None]
